FAERS Safety Report 4608117-3 (Version None)
Quarter: 2005Q2

REPORT INFORMATION
  Report Type: 
  Country: None (occurrence: None)
  Receive Date: 20050303
  Receipt Date: 20041019
  Transmission Date: 20051028
  Serious: No
  Sender: FDA-Public Use
  Company Number: 209776

PATIENT
  Age: 47 Year
  Sex: Female
  Weight: 82.5 kg

DRUGS (18)
  1. XOLAIR [Suspect]
     Indication: ASTHMA
     Dosage: 300 MG, Q2W, SUBCUTANEOUS
     Route: 058
     Dates: start: 20040712
  2. ADVAIR (FLUTICASONE PROPIONATE, SALMETEROL XINAFOATE) [Concomitant]
  3. ACULAR [Concomitant]
  4. CROLOM (CROMOLYN SODIUM) [Concomitant]
  5. BENADRYL [Concomitant]
  6. ZYRTEC [Concomitant]
  7. SINGULAIR [Concomitant]
  8. RHINOCORT AQUA (BUDESONIDE) [Concomitant]
  9. NEXIUM [Concomitant]
  10. LIMBITROL (CHLORDIAZEPOXIDE, AMITRIPTYLINE HYDROCHLORIDE) [Concomitant]
  11. PAMELOR [Concomitant]
  12. IMODIUM [Concomitant]
  13. DIPROLENE (BETAMETHASONE DIPROPIONATE) [Concomitant]
  14. LOESTRIN 1.5/30 [Concomitant]
  15. NEURONTIN [Concomitant]
  16. MIDRIN (ISOMETHEPTENE MUCATE, DICHLORALPHENAZONE, ACETAMINOPHEN) [Concomitant]
  17. TIZANIDINE (TIZANIDINE HYDROCHLORIDE) [Concomitant]
  18. XOLAIR [Suspect]

REACTIONS (1)
  - RASH ERYTHEMATOUS [None]
